FAERS Safety Report 8348578-X (Version None)
Quarter: 2012Q2

REPORT INFORMATION
  Report Type: 
  Country: None (occurrence: None)
  Receive Date: 20120510
  Receipt Date: 20120508
  Transmission Date: 20120825
  Serious: Yes (Hospitalization)
  Sender: FDA-Public Use
  Company Number: AU-AMGEN-AUSSP2012028709

PATIENT
  Sex: Female

DRUGS (3)
  1. VITAMIN D [Concomitant]
  2. XGEVA [Suspect]
     Indication: BREAST CANCER METASTATIC
  3. CALCIUM [Concomitant]

REACTIONS (4)
  - CONFUSIONAL STATE [None]
  - VOMITING [None]
  - HYPOCALCAEMIA [None]
  - MUSCLE TWITCHING [None]
